FAERS Safety Report 22343327 (Version 1)
Quarter: 2023Q2

REPORT INFORMATION
  Report Type: Spontaneous
  Country: ES (occurrence: ES)
  Receive Date: 20230519
  Receipt Date: 20230519
  Transmission Date: 20230722
  Serious: Yes (Life-Threatening, Hospitalization, Other)
  Sender: FDA-Public Use
  Company Number: ES-MLMSERVICE-20230425-4248563-1

PATIENT
  Age: 43 Year
  Sex: Female
  Weight: 65 kg

DRUGS (6)
  1. ESTRADIOL [Suspect]
     Active Substance: ESTRADIOL
     Dosage: 2 MG, QD (EXCEPT 5 DAYS OF THE MONTH DURING WHICH THE DOSE IS LOWERED TO 1MG/24H)
     Route: 048
  2. ESTRADIOL [Suspect]
     Active Substance: ESTRADIOL
     Indication: Primary hypogonadism
     Dosage: 1 MG, QD ONLY FOR 5 DAYS IN A MONTH
     Route: 048
  3. MITOTANE [Suspect]
     Active Substance: MITOTANE
     Indication: Adrenal gland cancer
     Dosage: UNK
  4. HYDROCORTISONE [Suspect]
     Active Substance: HYDROCORTISONE
     Indication: Adrenal insufficiency
     Dosage: 50 MG, QD
     Route: 048
  5. FLUDROCORTISONE [Suspect]
     Active Substance: FLUDROCORTISONE
     Indication: Adrenal insufficiency
     Dosage: 0.2 MG, QD
     Route: 048
  6. NORETHINDRONE [Suspect]
     Active Substance: NORETHINDRONE
     Indication: Primary hypogonadism
     Dosage: 1 MG, QD (DURING 10 DAYS IN A MONTH )
     Route: 048

REACTIONS (5)
  - Peliosis hepatis [Recovered/Resolved]
  - Hepatic rupture [Recovered/Resolved]
  - Anaemia [Recovered/Resolved]
  - Hypovolaemic shock [Recovered/Resolved]
  - Hepatic ischaemia [Recovered/Resolved]
